FAERS Safety Report 4927188-8 (Version None)
Quarter: 2006Q1

REPORT INFORMATION
  Report Type: 
  Country: None (occurrence: None)
  Receive Date: 20060228
  Receipt Date: 20041122
  Transmission Date: 20060701
  Serious: No
  Sender: FDA-Public Use
  Company Number: US-GLAXOSMITHKLINE-A0534874A

PATIENT
  Age: 48 Year
  Sex: Female

DRUGS (8)
  1. IMITREX [Suspect]
     Indication: MIGRAINE
     Route: 058
  2. MAXALT [Concomitant]
  3. INDERAL [Concomitant]
  4. CEPHALEXIN [Concomitant]
  5. BIRTH CONTROL [Concomitant]
  6. ALDACTONE [Concomitant]
  7. FAMVIR [Concomitant]
  8. FIORICET [Concomitant]

REACTIONS (2)
  - CONTUSION [None]
  - PHARMACEUTICAL PRODUCT COMPLAINT [None]
